FAERS Safety Report 10239951 (Version 3)
Quarter: 2014Q2

REPORT INFORMATION
  Report Type: Report from Study
  Country: AU (occurrence: AU)
  Receive Date: 20140616
  Receipt Date: 20140625
  Transmission Date: 20141212
  Serious: Yes (Hospitalization)
  Sender: FDA-Public Use
  Company Number: AU-VERTEX PHARMACEUTICALS INC-2014-002197

PATIENT
  Age: 34 Year
  Sex: Male
  Weight: 71 kg

DRUGS (10)
  1. KALYDECO [Suspect]
     Indication: CYSTIC FIBROSIS
     Dosage: 150 MG, BID
     Route: 048
     Dates: start: 20140305, end: 20140401
  2. KALYDECO [Suspect]
     Dosage: 150 MG, BID
     Route: 048
     Dates: start: 20140430
  3. PLACEBO [Suspect]
     Indication: CYSTIC FIBROSIS
     Dosage: 150 MG, BID
     Route: 048
     Dates: start: 20140305, end: 20140401
  4. PLACEBO [Suspect]
     Dosage: 150 MG, BID
     Route: 048
     Dates: start: 20140430
  5. CREON 25000 [Concomitant]
     Indication: PANCREATIC INSUFFICIENCY
     Dosage: 25000 UNK, UNK
  6. HYPERTONIC SALINE SOLUTION [Concomitant]
     Indication: CYSTIC FIBROSIS RESPIRATORY INFECTION SUPPRESSION
     Dosage: 5 ML, BID
  7. AZITHROMYCIN [Concomitant]
     Dosage: 1 G, QW
  8. SALBUTAMOL [Concomitant]
     Indication: CYSTIC FIBROSIS RESPIRATORY INFECTION SUPPRESSION
     Dosage: 5 ML, BID
     Route: 055
  9. ABDEC [Concomitant]
     Indication: HYPOVITAMINOSIS
     Dosage: 1 UNK, UNK
     Route: 048
  10. OMEPRAZOLE [Concomitant]
     Indication: GASTROOESOPHAGEAL REFLUX DISEASE
     Dosage: 20 MG, UNK
     Route: 048

REACTIONS (1)
  - Infective pulmonary exacerbation of cystic fibrosis [Recovered/Resolved]
